FAERS Safety Report 6878750-7 (Version None)
Quarter: 2010Q3

REPORT INFORMATION
  Report Type: 
  Country: None (occurrence: None)
  Receive Date: 20100728
  Receipt Date: 20100720
  Transmission Date: 20110219
  Serious: Yes (Hospitalization, Other)
  Sender: FDA-Public Use
  Company Number: IN-BAXTER-2010BH012834

PATIENT
  Age: 45 Year
  Sex: Male

DRUGS (2)
  1. DIANEAL [Suspect]
     Indication: PERITONEAL DIALYSIS
     Route: 033
     Dates: start: 20100425
  2. DIANEAL [Suspect]
     Route: 033
     Dates: start: 20100425

REACTIONS (3)
  - CONSTIPATION [None]
  - DIARRHOEA [None]
  - PERITONITIS [None]
